FAERS Safety Report 10108063 (Version 1)
Quarter: 2014Q2

REPORT INFORMATION
  Report Type: Spontaneous
  Country: BR (occurrence: BR)
  Receive Date: 20140424
  Receipt Date: 20140424
  Transmission Date: 20141212
  Serious: Yes (Other)
  Sender: FDA-Public Use
  Company Number: BR-ABBVIE-14P-020-1226573-00

PATIENT
  Sex: Female

DRUGS (4)
  1. HUMIRA [Suspect]
     Indication: RHEUMATOID ARTHRITIS
  2. REMICADE [Suspect]
     Indication: RHEUMATOID ARTHRITIS
  3. ACTEMRA [Suspect]
     Indication: RHEUMATOID ARTHRITIS
  4. ENBREL [Suspect]
     Indication: RHEUMATOID ARTHRITIS

REACTIONS (8)
  - Adverse event [Unknown]
  - Laryngeal oedema [Unknown]
  - Hypersensitivity [Unknown]
  - Hypersensitivity [Unknown]
  - Cough [Unknown]
  - Pruritus allergic [Unknown]
  - Rash macular [Unknown]
  - Dyspnoea [Unknown]
